FAERS Safety Report 22808446 (Version 6)
Quarter: 2024Q1

REPORT INFORMATION
  Report Type: Spontaneous
  Country: US (occurrence: US)
  Receive Date: 20230810
  Receipt Date: 20240209
  Transmission Date: 20240410
  Serious: No
  Sender: FDA-Public Use
  Company Number: US-PFIZER INC-PV202300135288

PATIENT
  Age: 71 Year
  Sex: Male
  Weight: 86.168 kg

DRUGS (2)
  1. ENBREL [Suspect]
     Active Substance: ETANERCEPT
     Indication: Product used for unknown indication
     Dosage: UNK (UNK)
     Route: 065
  2. BACTRIM [Suspect]
     Active Substance: SULFAMETHOXAZOLE\TRIMETHOPRIM
     Indication: Urinary tract infection
     Dosage: 3 DOSAGE FORM (3 DF [SULFAMETHOXAZOLE 800]/TRIMETHOPRIM 160]; 3 TABLETS EVERY 8 HOURS FOR 9 DAYS)
     Route: 065
     Dates: start: 20220909

REACTIONS (2)
  - Drug hypersensitivity [Recovered/Resolved]
  - Rash [Unknown]

NARRATIVE: CASE EVENT DATE: 20220909
